FAERS Safety Report 8138683-5 (Version None)
Quarter: 2012Q1

REPORT INFORMATION
  Report Type: 
  Country: None (occurrence: None)
  Receive Date: 20120215
  Receipt Date: 20120211
  Transmission Date: 20120608
  Serious: Yes (Hospitalization)
  Sender: FDA-Public Use
  Company Number: DE-ELI_LILLY_AND_COMPANY-DE201202003263

PATIENT
  Age: 73 Year
  Sex: Male

DRUGS (5)
  1. METOCLOPRAMIDE [Concomitant]
  2. SIMVABETA [Concomitant]
     Dosage: 40 MG, UNK
  3. ALLOPURINOL [Concomitant]
     Dosage: 300 MG, UNK
  4. REPAGLINIDE [Concomitant]
     Dosage: 2 MG, TID
  5. BYDUREON [Suspect]
     Dosage: 2 MG, WEEKLY (1/W)
     Route: 058
     Dates: start: 20120101

REACTIONS (2)
  - PNEUMONIA [None]
  - BLOOD GLUCOSE INCREASED [None]
